FAERS Safety Report 8970510 (Version 1)
Quarter: 2012Q4

REPORT INFORMATION
  Report Type: 
  Country: US (occurrence: US)
  Receive Date: 20121218
  Receipt Date: 20121218
  Transmission Date: 20130627
  Serious: No
  Sender: FDA-Public Use
  Company Number: US-BRISTOL-MYERS SQUIBB COMPANY-16502924

PATIENT
  Age: 2 None
  Sex: Female

DRUGS (1)
  1. ABILIFY TABS [Suspect]
     Dosage: Dose decreased to 3mg/D

REACTIONS (3)
  - Diplopia [Recovering/Resolving]
  - Vision blurred [Recovering/Resolving]
  - Drug ineffective [Unknown]
